FAERS Safety Report 8260315-6 (Version None)
Quarter: 2012Q2

REPORT INFORMATION
  Report Type: 
  Country: None (occurrence: None)
  Receive Date: 20120404
  Receipt Date: 20120322
  Transmission Date: 20120825
  Serious: Yes (Other)
  Sender: FDA-Public Use
  Company Number: IT-ELI_LILLY_AND_COMPANY-IT201202003845

PATIENT
  Age: 72 Year
  Sex: Female

DRUGS (11)
  1. NOPRON [Concomitant]
  2. OMEPRAZOLE [Concomitant]
     Dosage: 20 MG, QD
  3. LORANS [Concomitant]
     Dosage: 2 MG, QD
  4. ZYPREXA [Suspect]
     Dosage: 2.5 MG, QD
     Route: 048
     Dates: start: 20111114, end: 20111201
  5. DEPAKENE [Concomitant]
     Dosage: 450 MG, QD
  6. TRIPTIZOL [Concomitant]
     Dosage: 15 MG, QD
  7. ZYPREXA [Suspect]
     Dosage: UNK
     Dates: start: 20120127
  8. DULOXETIME HYDROCHLORIDE [Concomitant]
     Dosage: 60 MG, QD
  9. DELORAZEPAM [Concomitant]
     Dosage: 2 MG, QD
  10. ATENOLOL [Concomitant]
     Dosage: 25 MG, QD
  11. LEVOTHYROXINE SODIUM [Concomitant]
     Dosage: 25 UG, QD

REACTIONS (1)
  - EOSINOPHIL PERCENTAGE INCREASED [None]
